FAERS Safety Report 16477977 (Version 1)
Quarter: 2019Q2

REPORT INFORMATION
  Report Type: Spontaneous
  Country: US (occurrence: US)
  Receive Date: 20190626
  Receipt Date: 20190626
  Transmission Date: 20190711
  Serious: No
  Sender: FDA-Public Use
  Company Number: US-JNJFOC-20190625766

PATIENT
  Age: 44 Year
  Sex: Male
  Weight: 102.15 kg

DRUGS (1)
  1. MENS ROGAINE EXTRA STRENGTH [Suspect]
     Active Substance: MINOXIDIL
     Indication: ALOPECIA
     Dosage: HALF CAPFUL
     Route: 061
     Dates: start: 20150612, end: 20190529

REACTIONS (2)
  - Application site erythema [Not Recovered/Not Resolved]
  - Application site dryness [Not Recovered/Not Resolved]

NARRATIVE: CASE EVENT DATE: 20190512
